FAERS Safety Report 20201997 (Version 1)
Quarter: 2021Q4

REPORT INFORMATION
  Report Type: Spontaneous
  Country: US (occurrence: US)
  Receive Date: 20211217
  Receipt Date: 20211217
  Transmission Date: 20220303
  Serious: No
  Sender: FDA-Public Use
  Company Number: US-BAUSCH-BL-2021-041580

PATIENT
  Age: 71 Year
  Sex: Female

DRUGS (4)
  1. ELIDEL [Suspect]
     Active Substance: PIMECROLIMUS
     Indication: Rash
     Route: 065
     Dates: start: 20211201
  2. ELIDEL [Suspect]
     Active Substance: PIMECROLIMUS
     Indication: Erythema
  3. ELIDEL [Suspect]
     Active Substance: PIMECROLIMUS
     Indication: Urticaria
  4. ELIDEL [Suspect]
     Active Substance: PIMECROLIMUS
     Indication: Pruritus

REACTIONS (1)
  - Drug ineffective [Unknown]
